FAERS Safety Report 24459877 (Version 1)
Quarter: 2024Q4

REPORT INFORMATION
  Report Type: Report from Study
  Country: TH (occurrence: TH)
  Receive Date: 20241018
  Receipt Date: 20241018
  Transmission Date: 20250115
  Serious: No
  Sender: ROCHE
  Company Number: TH-ROCHE-3568536

PATIENT
  Age: 80 Year
  Sex: Male

DRUGS (2)
  1. MABTHERA [Suspect]
     Active Substance: RITUXIMAB
     Indication: Follicular lymphoma
     Route: 065
     Dates: start: 20240121
  2. MABTHERA [Suspect]
     Active Substance: RITUXIMAB
     Route: 065

REACTIONS (3)
  - Abdominal discomfort [Unknown]
  - Body temperature increased [Not Recovered/Not Resolved]
  - Constipation [Not Recovered/Not Resolved]
